FAERS Safety Report 19034992 (Version 1)
Quarter: 2021Q1

REPORT INFORMATION
  Report Type: Report from Study
  Country: US (occurrence: US)
  Receive Date: 20210320
  Receipt Date: 20210320
  Transmission Date: 20210420
  Serious: Yes (Other)
  Sender: FDA-Public Use
  Company Number: US-ASTRAZENECA-2021A011434

PATIENT
  Age: 40 Year
  Sex: Female

DRUGS (4)
  1. TAGRISSO [Suspect]
     Active Substance: OSIMERTINIB
     Indication: LUNG NEOPLASM MALIGNANT
     Route: 048
     Dates: start: 20201115
  2. ERLOTINIB [Concomitant]
     Active Substance: ERLOTINIB
  3. GABAPENTIN. [Concomitant]
     Active Substance: GABAPENTIN
  4. ZOFRAN [Concomitant]
     Active Substance: ONDANSETRON HYDROCHLORIDE

REACTIONS (6)
  - Pericardial effusion [Unknown]
  - Eyelid thickening [Unknown]
  - Cough [Unknown]
  - Feeling abnormal [Unknown]
  - Rash [Unknown]
  - Pain [Unknown]
